FAERS Safety Report 8579111-5 (Version None)
Quarter: 2012Q3

REPORT INFORMATION
  Report Type: 
  Country: None (occurrence: None)
  Receive Date: 20120808
  Receipt Date: 20120802
  Transmission Date: 20120928
  Serious: Yes (Other)
  Sender: FDA-Public Use
  Company Number: JP-PFIZER INC-2012187507

PATIENT
  Sex: Male

DRUGS (1)
  1. LYRICA [Suspect]
     Indication: HYPOAESTHESIA
     Route: 048

REACTIONS (5)
  - URINE OUTPUT DECREASED [None]
  - CONSTIPATION [None]
  - GAIT DISTURBANCE [None]
  - ABDOMINAL DISTENSION [None]
  - WEIGHT INCREASED [None]
